FAERS Safety Report 24049139 (Version 1)
Quarter: 2024Q3

REPORT INFORMATION
  Report Type: Spontaneous
  Country: AU (occurrence: AU)
  Receive Date: 20240704
  Receipt Date: 20240704
  Transmission Date: 20241017
  Serious: Yes (Life-Threatening, Hospitalization, Other)
  Sender: CIPLA
  Company Number: AU-CIPLA LTD.-2024AU06716

PATIENT

DRUGS (5)
  1. ASPIRIN [Suspect]
     Active Substance: ASPIRIN
     Dosage: UNK
     Route: 048
  2. MELOXICAM [Suspect]
     Active Substance: MELOXICAM
     Dosage: UNK
     Route: 048
  3. PHENYTOIN [Suspect]
     Active Substance: PHENYTOIN
     Dosage: UNK
     Route: 048
  4. FENTANYL [Suspect]
     Active Substance: FENTANYL\FENTANYL CITRATE
     Dosage: UNK
     Route: 061
  5. ORPHENADRINE [Suspect]
     Active Substance: ORPHENADRINE
     Dosage: UNK (SUSTAINED RELEASE)
     Route: 048

REACTIONS (5)
  - Intentional overdose [Unknown]
  - Poisoning deliberate [Unknown]
  - Delirium [Unknown]
  - Urinary retention [Unknown]
  - Somnolence [Unknown]
